FAERS Safety Report 14919792 (Version 1)
Quarter: 2018Q2

REPORT INFORMATION
  Report Type: Spontaneous
  Country: US (occurrence: US)
  Receive Date: 20180502
  Receipt Date: 20180502
  Transmission Date: 20180711
  Serious: Yes (Disabling, Other)
  Sender: FDA-Public Use
  Company Number: None

PATIENT
  Age: 13 Year
  Sex: Female
  Weight: 44.1 kg

DRUGS (2)
  1. POLYETHYLENE GLYCOL 3350 NF POWDER FOR ORAL SOLUTION RX ONLY 527 GRAMS [Suspect]
     Active Substance: POLYETHYLENE GLYCOL 3350
     Indication: CONSTIPATION
     Dosage: ?          QUANTITY:1 OUNCE(S);?
     Route: 048
     Dates: start: 20100501, end: 20180502
  2. MIRALAX [Concomitant]
     Active Substance: POLYETHYLENE GLYCOL 3350

REACTIONS (14)
  - Urinary tract disorder [None]
  - Appetite disorder [None]
  - Skin discolouration [None]
  - Feeling abnormal [None]
  - Abnormal behaviour [None]
  - Crying [None]
  - Headache [None]
  - Hyperhidrosis [None]
  - Mobility decreased [None]
  - Hypoaesthesia [None]
  - Educational problem [None]
  - Fatigue [None]
  - Malaise [None]
  - Pain [None]

NARRATIVE: CASE EVENT DATE: 20180113
